FAERS Safety Report 4843116-8 (Version None)
Quarter: 2005Q4

REPORT INFORMATION
  Report Type: 
  Country: None (occurrence: None)
  Receive Date: 20051031
  Receipt Date: 20050614
  Transmission Date: 20060501
  Serious: Yes (Other)
  Sender: FDA-Public Use
  Company Number: PHEH2005US06684

PATIENT
  Sex: Female

DRUGS (6)
  1. LESCOL XL [Suspect]
     Indication: HYPERCHOLESTEROLAEMIA
     Dosage: 80 MG, QD
     Dates: end: 20050609
  2. NEXIUM [Concomitant]
  3. VASOTEC [Concomitant]
  4. LEXAPRO [Concomitant]
  5. ASPIRIN [Concomitant]
  6. MULTIVITAMINS (ASCORBIC ACID, ERGOCALCIFEROL, FOLIC ACID, NICOTAMIDE, [Concomitant]

REACTIONS (7)
  - ASTHENIA [None]
  - CHROMATURIA [None]
  - FATIGUE [None]
  - LABORATORY TEST ABNORMAL [None]
  - LETHARGY [None]
  - MUSCLE INJURY [None]
  - MYALGIA [None]
